FAERS Safety Report 15034312 (Version 1)
Quarter: 2018Q2

REPORT INFORMATION
  Report Type: Spontaneous
  Country: NO (occurrence: NO)
  Receive Date: 20180620
  Receipt Date: 20180620
  Transmission Date: 20180711
  Serious: Yes (Life-Threatening, Hospitalization, Disabling, Other)
  Sender: FDA-Public Use
  Company Number: NO-TEVA-2018-NO-907785

PATIENT
  Age: 55 Year
  Sex: Male

DRUGS (8)
  1. CIMZIA [Suspect]
     Active Substance: CERTOLIZUMAB PEGOL
     Indication: PSORIATIC ARTHROPATHY
     Route: 058
     Dates: start: 2014, end: 2017
  2. MAGNESIUM [Concomitant]
     Active Substance: MAGNESIUM
     Dosage: 120 MILLIGRAM DAILY;
     Route: 065
  3. ADALAT [Concomitant]
     Active Substance: NIFEDIPINE
     Dosage: 20 MILLIGRAM DAILY; 20 MG MORNING
     Route: 048
  4. PANTOPRAZOLE [Concomitant]
     Active Substance: PANTOPRAZOLE
     Dosage: 40 MILLIGRAM DAILY; 40 MG EVENING
     Route: 065
  5. SEROQUEL [Concomitant]
     Active Substance: QUETIAPINE FUMARATE
     Indication: DEPRESSION
     Dosage: 100 MILLIGRAM DAILY; 100 MG EVENING
     Route: 048
  6. NYCOPLUS C-VITAMIN [Concomitant]
     Dosage: 1000 MILLIGRAM DAILY;
     Route: 048
  7. RITALIN [Concomitant]
     Active Substance: METHYLPHENIDATE HYDROCHLORIDE
     Indication: ATTENTION DEFICIT/HYPERACTIVITY DISORDER
     Dosage: 80 MILLIGRAM DAILY; 80 MG MORNING
     Route: 048
  8. METHOTREXATE. [Suspect]
     Active Substance: METHOTREXATE
     Indication: PSORIATIC ARTHROPATHY
     Route: 065
     Dates: start: 2014, end: 2017

REACTIONS (8)
  - Acute respiratory failure [Recovered/Resolved]
  - Paresis [Not Recovered/Not Resolved]
  - Osteomyelitis [Recovering/Resolving]
  - Meningitis staphylococcal [Recovering/Resolving]
  - Infectious pleural effusion [Recovering/Resolving]
  - Cellulitis [Recovering/Resolving]
  - Staphylococcal sepsis [Recovering/Resolving]
  - Spinal cord abscess [Recovering/Resolving]

NARRATIVE: CASE EVENT DATE: 2017
